FAERS Safety Report 17037912 (Version 1)
Quarter: 2019Q4

REPORT INFORMATION
  Report Type: Other
  Country: US (occurrence: US)
  Receive Date: 20191115
  Receipt Date: 20191115
  Transmission Date: 20200122
  Serious: Yes (Life-Threatening, Other)
  Sender: FDA-Public Use
  Company Number: US-ALSI-201900463

PATIENT
  Age: 13 Month
  Sex: Male

DRUGS (1)
  1. OXYGEN. [Suspect]
     Active Substance: OXYGEN
     Indication: HYPERSENSITIVITY
     Route: 003

REACTIONS (3)
  - Off label use [Recovered/Resolved]
  - Cold urticaria [Recovered/Resolved]
  - Anaphylactic reaction [Recovered/Resolved]
